FAERS Safety Report 10067999 (Version 1)
Quarter: 2014Q2

REPORT INFORMATION
  Report Type: Spontaneous
  Country: PH (occurrence: PH)
  Receive Date: 20140409
  Receipt Date: 20140409
  Transmission Date: 20141212
  Serious: Yes (Death, Other)
  Sender: FDA-Public Use
  Company Number: PH-MERCK-1404PHL003602

PATIENT
  Sex: Female

DRUGS (1)
  1. EZETROL [Suspect]
     Dosage: 1 DF(STRENGTH: 10MG), QD
     Route: 048
     Dates: start: 201209

REACTIONS (1)
  - Pancreatic carcinoma [Fatal]
